FAERS Safety Report 9148505 (Version 1)
Quarter: 2013Q1

REPORT INFORMATION
  Report Type: Spontaneous
  Country: US (occurrence: None)
  Receive Date: 20130226
  Receipt Date: 20130226
  Transmission Date: 20140127
  Serious: Yes (Death)
  Sender: FDA-Public Use
  Company Number: SYM-2013-00809

PATIENT
  Age: 55 Year
  Sex: Female

DRUGS (1)
  1. XENAZINE [Suspect]
     Indication: HUNTINGTON^S DISEASE
     Dosage: 25  MG,  2 IN 1 D,  ORAL?01/13/2009  -  UNKNOWN
     Route: 048
     Dates: start: 20090113

REACTIONS (1)
  - Death [None]
